FAERS Safety Report 5267301-9 (Version None)
Quarter: 2007Q1

REPORT INFORMATION
  Report Type: 
  Country: None (occurrence: None)
  Receive Date: 20070316
  Receipt Date: 20070309
  Transmission Date: 20070707
  Serious: Yes (Disabling)
  Sender: FDA-Public Use
  Company Number: JP-JPN-A200700817

PATIENT
  Age: 14 Year
  Sex: Male

DRUGS (3)
  1. RELENZA [Suspect]
     Indication: INFLUENZA
     Dosage: 10MG TWICE PER DAY
     Route: 055
     Dates: start: 20070221, end: 20070226
  2. SOLANTAL [Concomitant]
     Route: 048
     Dates: start: 20070221, end: 20070225
  3. ACETAMINOPHEN [Concomitant]
     Dosage: .99G PER DAY
     Route: 048
     Dates: start: 20070221, end: 20070225

REACTIONS (2)
  - MOUTH INJURY [None]
  - WOUND HAEMORRHAGE [None]
